APPROVED DRUG PRODUCT: TERAZOSIN HYDROCHLORIDE
Active Ingredient: TERAZOSIN HYDROCHLORIDE
Strength: EQ 10MG BASE
Dosage Form/Route: CAPSULE;ORAL
Application: A075614 | Product #004 | TE Code: AB
Applicant: HERITAGE PHARMA LABS INC DBA AVET PHARMACEUTICALS LABS INC
Approved: Jan 30, 2001 | RLD: No | RS: No | Type: RX